FAERS Safety Report 8611847-X (Version None)
Quarter: 2012Q3

REPORT INFORMATION
  Report Type: 
  Country: None (occurrence: None)
  Receive Date: 20120822
  Receipt Date: 20120813
  Transmission Date: 20120928
  Serious: Yes (Other)
  Sender: FDA-Public Use
  Company Number: US-BAYER-2012-000108

PATIENT
  Age: 17 Year
  Sex: Female

DRUGS (3)
  1. SULFAMETHOXAZOLE AND TRIMETHOPRIM [Concomitant]
  2. YAZ [Suspect]
     Dosage: UNK
  3. CEPHALEXIN [Concomitant]
     Dosage: 500 MG, UNK

REACTIONS (4)
  - PAIN [None]
  - THROMBOSIS [None]
  - INJURY [None]
  - CEREBROVASCULAR ACCIDENT [None]
